FAERS Safety Report 4447346-9 (Version None)
Quarter: 2004Q3

REPORT INFORMATION
  Report Type: 
  Country: None (occurrence: None)
  Receive Date: 20040813
  Receipt Date: 20040628
  Transmission Date: 20050211
  Serious: No
  Sender: FDA-Public Use
  Company Number: S04-USA-03917-01

PATIENT
  Age: 85 Year
  Sex: Male

DRUGS (2)
  1. NAMENDA [Suspect]
     Indication: DEMENTIA
     Dosage: 2.5 MG QD PO
     Route: 048
     Dates: start: 20040601, end: 20040601
  2. NAMENDA [Suspect]
     Indication: DEMENTIA
     Dosage: 2.5 MG BID PO
     Route: 048
     Dates: start: 20040601

REACTIONS (2)
  - CONSTIPATION [None]
  - DIARRHOEA [None]
